FAERS Safety Report 5199541-1 (Version None)
Quarter: 2006Q4

REPORT INFORMATION
  Report Type: 
  Country: None (occurrence: None)
  Receive Date: 20061229
  Receipt Date: 20061214
  Transmission Date: 20070319
  Serious: Yes (Hospitalization, Other)
  Sender: FDA-Public Use
  Company Number: 2006RR-03130

PATIENT
  Age: 56 Year
  Sex: Male

DRUGS (9)
  1. AMIODARONE HCL [Suspect]
     Indication: SUPRAVENTRICULAR TACHYCARDIA
     Dosage: 1.2 G, SINGLE, INTRAVENOUS
     Route: 042
  2. CLARITHROMYCIN [Suspect]
     Indication: LOWER RESPIRATORY TRACT INFECTION
     Dosage: 1 G, SINGLE, ORAL
     Route: 048
  3. SIMVASTATIN [Suspect]
     Indication: MYOCARDIAL ISCHAEMIA
     Dosage: 40 MG, SINGLE, ORAL
     Route: 048
  4. ADENOSINE [Suspect]
     Indication: SUPRAVENTRICULAR TACHYCARDIA
     Dosage: 1 UNK, INTRAVENOUS
     Route: 042
  5. AMLODIPINE [Concomitant]
  6. ASPIRIN [Concomitant]
  7. CEFTRIAXONE [Concomitant]
  8. FERROUS SULPHATE (FERROUS SULFATE) [Concomitant]
  9. LANSOPRAZOLE [Concomitant]

REACTIONS (7)
  - DRUG INTERACTION [None]
  - LIVER FUNCTION TEST ABNORMAL [None]
  - MYOSITIS [None]
  - PERICARDIAL EFFUSION [None]
  - PLEURAL EFFUSION [None]
  - PULMONARY EMBOLISM [None]
  - SUPRAVENTRICULAR TACHYCARDIA [None]
